FAERS Safety Report 9391828 (Version 1)
Quarter: 2013Q3

REPORT INFORMATION
  Report Type: Report from Study
  Country: JP (occurrence: JP)
  Receive Date: 20130709
  Receipt Date: 20130709
  Transmission Date: 20140515
  Serious: Yes (Death, Other)
  Sender: FDA-Public Use
  Company Number: JP-009507513-1307JPN003889

PATIENT
  Age: 39 Year
  Sex: Female
  Weight: 49 kg

DRUGS (9)
  1. TEMOZOLOMIDE [Suspect]
     Indication: GLIOBLASTOMA MULTIFORME
     Dosage: 75 MG/M2, QD
     Route: 041
     Dates: start: 20101022, end: 20101107
  2. TEMOZOLOMIDE [Suspect]
     Dosage: 75 MG/M2, QD
     Route: 041
     Dates: start: 20101111, end: 20101112
  3. ZANTAC [Suspect]
     Indication: PROPHYLAXIS
     Dosage: DAILY DOSAGE UNKNOWN
     Route: 041
     Dates: end: 20101115
  4. BAKTAR [Concomitant]
     Indication: ANTIFUNGAL PROPHYLAXIS
     Dosage: DAILY DOSAGE UNKNOWN; FORMULATION-POR
     Route: 048
     Dates: start: 20101109, end: 20101207
  5. LACTEC [Concomitant]
     Indication: PROPHYLAXIS
     Dosage: DAILY DOSAGE UNKNOWN
     Route: 041
  6. FULCALIQ [Concomitant]
     Indication: PROPHYLAXIS
     Dosage: DAILY DOSAGE UNKNOWN
     Route: 041
  7. ELEMENMIC [Concomitant]
     Indication: PROPHYLAXIS
     Dosage: DAILY DOSAGE UNKNOWN
     Route: 041
  8. BETAMETHASONE SODIUM PHOSPHATE [Concomitant]
     Indication: PROPHYLAXIS
     Dosage: DAILY DOSAGE UNKNOWN
     Route: 041
     Dates: end: 20101115
  9. GRANISETRON [Concomitant]
     Indication: VOMITING
     Dosage: DAILY DOSAGE UNKNOWN
     Route: 041
     Dates: start: 20101023, end: 20101025

REACTIONS (4)
  - Disease progression [Fatal]
  - Drug eruption [Recovering/Resolving]
  - Drug eruption [Recovering/Resolving]
  - Vomiting [Recovered/Resolved]
